FAERS Safety Report 8327252-X (Version None)
Quarter: 2012Q2

REPORT INFORMATION
  Report Type: 
  Country: None (occurrence: None)
  Receive Date: 20120502
  Receipt Date: 20120422
  Transmission Date: 20120825
  Serious: Yes (Hospitalization)
  Sender: FDA-Public Use
  Company Number: IT-BRISTOL-MYERS SQUIBB COMPANY-16548760

PATIENT
  Age: 75 Year
  Sex: Male

DRUGS (2)
  1. IRINOTECAN HCL [Suspect]
     Indication: RECTAL CANCER
     Dosage: INTERRUPTED AND RESTAT AT 100MG STRENGTH:20MG/ML IRINOTECAN KABI
     Route: 042
     Dates: start: 20111004
  2. ERBITUX [Suspect]
     Indication: RECTAL CANCER
     Dosage: INTERRUPTED AND RESTAT AT 325MG STRENGTH:5MG/ML
     Route: 042
     Dates: start: 20111004

REACTIONS (2)
  - NEUTROPENIA [None]
  - THROMBOCYTOPENIA [None]
